FAERS Safety Report 8379597-5 (Version None)
Quarter: 2012Q1

REPORT INFORMATION
  Report Type: 
  Country: None (occurrence: None)
  Receive Date: 20120323
  Receipt Date: 20110407
  Transmission Date: 20120608
  Serious: Yes (Hospitalization)
  Sender: FDA-Public Use
  Company Number: 163-21880-11040906

PATIENT
  Age: 78 Year
  Sex: Male

DRUGS (7)
  1. TOPROL (METOPROLOL SUCCINATE)(UNKNOWN) [Concomitant]
  2. REVLIMID [Suspect]
     Indication: MULTIPLE MYELOMA
     Dosage: 25 MG, 1 IN 1 D, PO, 10 MG, 1 IN 1 D, PO
     Route: 048
     Dates: start: 20091120
  3. REVLIMID [Suspect]
     Indication: MULTIPLE MYELOMA
     Dosage: 25 MG, 1 IN 1 D, PO, 10 MG, 1 IN 1 D, PO
     Route: 048
     Dates: start: 20101201
  4. PRINIVIL (LISINOPRIL) (UNKNOWN) [Concomitant]
  5. FLOMAX (TAMSULOSIN HYDROCHLORIDE)(UNKNOWN) [Concomitant]
  6. ZOCOR (SIMVASTATIN)(UNKNOWN) [Concomitant]
  7. PROSCAR (FINASTERIDE)(UNKNOWN) [Concomitant]

REACTIONS (1)
  - PNEUMONIA [None]
